FAERS Safety Report 18395681 (Version 1)
Quarter: 2020Q4

REPORT INFORMATION
  Report Type: Spontaneous
  Country: IT (occurrence: IT)
  Receive Date: 20201018
  Receipt Date: 20201018
  Transmission Date: 20210114
  Serious: Yes (Other)
  Sender: FDA-Public Use
  Company Number: IT-LUPIN PHARMACEUTICALS INC.-2020-07334

PATIENT
  Age: 53 Year
  Sex: Female

DRUGS (8)
  1. HYDROXYCHLOROQUINE [Suspect]
     Active Substance: HYDROXYCHLOROQUINE
     Indication: COVID-19
     Dosage: 200 MILLIGRAM, BID
     Route: 065
  2. METHYLPREDNISOLONE. [Suspect]
     Active Substance: METHYLPREDNISOLONE
     Indication: COVID-19
     Dosage: 1 MILLIGRAM/KILOGRAM, QD
     Route: 042
  3. FUROSEMIDE. [Concomitant]
     Active Substance: FUROSEMIDE
     Indication: DRUG THERAPY
     Dosage: 25 TO 50 MG
     Route: 065
  4. CANRENONE [Concomitant]
     Active Substance: CANRENONE
     Indication: DRUG THERAPY
     Dosage: 50 MILLIGRAM, QD
     Route: 065
  5. DOBUTAMINE [Concomitant]
     Active Substance: DOBUTAMINE HYDROCHLORIDE
     Indication: HYPOTENSION
     Dosage: UNK
     Route: 065
  6. LOPINAVIR/RITONAVIR [Concomitant]
     Active Substance: LOPINAVIR\RITONAVIR
     Indication: COVID-19
     Dosage: 2 DOSAGE FORM, BID, LOPINAVIR 200 MG/ RITONAVIR 50 MG
     Route: 065
  7. ASPIRIN [ACETYLSALICYLIC ACID] [Concomitant]
     Active Substance: ASPIRIN
     Indication: PRODUCT USED FOR UNKNOWN INDICATION
     Dosage: 500 MILLIGRAM, BID
     Route: 042
  8. BISOPROLOL [Concomitant]
     Active Substance: BISOPROLOL
     Indication: DRUG THERAPY
     Dosage: 2.5 MILLIGRAM, QD
     Route: 065

REACTIONS (1)
  - Off label use [Unknown]
